FAERS Safety Report 5097693-5 (Version None)
Quarter: 2006Q3

REPORT INFORMATION
  Report Type: 
  Country: None (occurrence: None)
  Receive Date: 20060901
  Receipt Date: 20060818
  Transmission Date: 20061208
  Serious: Yes (Hospitalization)
  Sender: FDA-Public Use
  Company Number: FR-2006-017392

PATIENT
  Age: 47 Year
  Sex: Female

DRUGS (1)
  1. BETASERON(BETAFERON (SH Y 579E)) BETASERON(INTERFERON BETA - 1B) INJEC [Suspect]
     Indication: MULTIPLE SCLEROSIS
     Dosage: 8 MIU, EVERY 2D, SUBCUTANEOUS
     Route: 058
     Dates: start: 20041225

REACTIONS (5)
  - BLOOD THYROID STIMULATING HORMONE INCREASED [None]
  - HAEMATOCRIT DECREASED [None]
  - LYMPHOCYTE COUNT DECREASED [None]
  - PROTEIN TOTAL INCREASED [None]
  - THYROGLOBULIN DECREASED [None]
